FAERS Safety Report 4885794-3 (Version None)
Quarter: 2006Q1

REPORT INFORMATION
  Report Type: 
  Country: None (occurrence: None)
  Receive Date: 20060117
  Receipt Date: 20060102
  Transmission Date: 20060701
  Serious: Yes (Other)
  Sender: FDA-Public Use
  Company Number: 108453ISR

PATIENT
  Age: 45 Year
  Sex: Female

DRUGS (6)
  1. GLATIRAMER ACETATE [Suspect]
     Indication: MULTIPLE SCLEROSIS
     Dosage: 20 MILLIGRAM
     Route: 058
     Dates: start: 20020508
  2. FAMPRIDINE [Concomitant]
  3. METOPROLOL [Concomitant]
  4. GABAPENTIN [Concomitant]
  5. TOLTERODINE TARTRATE [Concomitant]
  6. CONTRACEPTIVE PILL [Concomitant]

REACTIONS (6)
  - HAEMATOMA [None]
  - INJECTION SITE NECROSIS [None]
  - LOSS OF CONSCIOUSNESS [None]
  - OPEN WOUND [None]
  - POST PROCEDURAL COMPLICATION [None]
  - WRONG TECHNIQUE IN DRUG USAGE PROCESS [None]
